FAERS Safety Report 7080589-7 (Version None)
Quarter: 2010Q4

REPORT INFORMATION
  Report Type: 
  Country: None (occurrence: None)
  Receive Date: 20101025
  Receipt Date: 20101014
  Transmission Date: 20110411
  Serious: Yes (Other)
  Sender: FDA-Public Use
  Company Number: 1000016859

PATIENT
  Age: 45 Year
  Sex: Female

DRUGS (3)
  1. SAVELLA [Suspect]
     Dosage: 50 MG (50 MG, 1 IN 1 D), ORAL
     Route: 048
  2. PAXIL [Concomitant]
  3. CELEXA [Concomitant]

REACTIONS (3)
  - ANGER [None]
  - HOMICIDAL IDEATION [None]
  - IRRITABILITY [None]
